FAERS Safety Report 9371964 (Version 2)
Quarter: 2013Q2

REPORT INFORMATION
  Report Type: Spontaneous
  Country: FR (occurrence: FR)
  Receive Date: 20130627
  Receipt Date: 20130628
  Transmission Date: 20140414
  Serious: Yes (Hospitalization)
  Sender: FDA-Public Use
  Company Number: FR-PFIZER INC-2013191011

PATIENT
  Age: 47 Year
  Sex: Male

DRUGS (6)
  1. LYRICA [Suspect]
     Dosage: UNK
     Route: 048
  2. PARACETAMOL [Suspect]
     Dosage: UNK
     Route: 048
  3. SKENAN [Suspect]
     Dosage: UNK
     Route: 048
  4. ACTISKENAN [Suspect]
     Dosage: UNK
     Route: 048
  5. MYOLASTAN [Suspect]
     Dosage: UNK
  6. VOLTARENE [Suspect]
     Dosage: UNK
     Route: 048

REACTIONS (2)
  - Hepatocellular injury [Unknown]
  - Rash pruritic [Unknown]
